FAERS Safety Report 12335923 (Version 1)
Quarter: 2016Q2

REPORT INFORMATION
  Report Type: Spontaneous
  Country: US (occurrence: None)
  Receive Date: 20160504
  Receipt Date: 20160504
  Transmission Date: 20160815
  Serious: Yes (Disabling)
  Sender: FDA-Public Use
  Company Number: None

PATIENT
  Age: 32 Year
  Sex: Male
  Weight: 83.92 kg

DRUGS (6)
  1. GADAVIST [Suspect]
     Active Substance: GADOBUTROL
     Indication: NUCLEAR MAGNETIC RESONANCE IMAGING ABDOMINAL
     Dosage: 9 CC ONE TIME INTO A VEIN
     Route: 042
     Dates: start: 20151106, end: 20151106
  2. CLARITIN [Concomitant]
     Active Substance: LORATADINE
  3. AFINITOR [Concomitant]
     Active Substance: EVEROLIMUS
  4. MULTIVITAMIN [Concomitant]
     Active Substance: VITAMINS
  5. ALLERGY SHOT [Concomitant]
     Active Substance: UNSPECIFIED INGREDIENT
  6. FISH OIL [Concomitant]
     Active Substance: FISH OIL

REACTIONS (10)
  - Musculoskeletal chest pain [None]
  - Bone pain [None]
  - Burning sensation [None]
  - Skin disorder [None]
  - Drug screen positive [None]
  - Headache [None]
  - Muscle contractions involuntary [None]
  - Arthralgia [None]
  - Paraesthesia [None]
  - Muscle spasms [None]

NARRATIVE: CASE EVENT DATE: 20151106
